FAERS Safety Report 22350160 (Version 1)
Quarter: 2023Q2

REPORT INFORMATION
  Report Type: Spontaneous
  Country: US (occurrence: None)
  Receive Date: 20230519
  Receipt Date: 20230519
  Transmission Date: 20230721
  Serious: Yes (Disabling)
  Sender: FDA-Public Use
  Company Number: None

PATIENT
  Age: 78 Year
  Sex: Female
  Weight: 54 kg

DRUGS (4)
  1. DEXAMETHASONE\TOBRAMYCIN [Suspect]
     Active Substance: DEXAMETHASONE\TOBRAMYCIN
     Indication: Conjunctivitis
     Dosage: FREQUENCY : EVERY 6 HOURS;?
     Route: 047
     Dates: start: 20230214, end: 20230307
  2. LEVOTHYROXINE [Concomitant]
     Active Substance: LEVOTHYROXINE
  3. vitD [Concomitant]
  4. IRON [Concomitant]
     Active Substance: IRON

REACTIONS (3)
  - Visual impairment [None]
  - Cataract [None]
  - Blindness [None]

NARRATIVE: CASE EVENT DATE: 20230214
